FAERS Safety Report 8852978 (Version 4)
Quarter: 2013Q3

REPORT INFORMATION
  Report Type: Spontaneous
  Country: CA (occurrence: CA)
  Receive Date: 20121022
  Receipt Date: 20130729
  Transmission Date: 20140515
  Serious: Yes (Other)
  Sender: FDA-Public Use
  Company Number: CHPA2012CA021859

PATIENT
  Age: 88 Year
  Sex: Female

DRUGS (4)
  1. ACETYLSALICYLIC ACID [Suspect]
  2. B12 ^RECIP^ [Concomitant]
  3. ANTIHYPERTENSIVES [Concomitant]
     Indication: HYPERTENSION
     Dosage: UNK
  4. OTRIVIN [Suspect]
     Indication: ASTHMA
     Dosage: UNK, BID
     Route: 045

REACTIONS (13)
  - Rib fracture [Not Recovered/Not Resolved]
  - Joint injury [Unknown]
  - Ulcer haemorrhage [Unknown]
  - Fall [Not Recovered/Not Resolved]
  - Pain [Not Recovered/Not Resolved]
  - Insomnia [Recovered/Resolved]
  - Visual impairment [Recovered/Resolved]
  - Heart rate increased [Recovered/Resolved]
  - Influenza like illness [Unknown]
  - Diarrhoea [Unknown]
  - Vomiting [Unknown]
  - Incorrect drug administration duration [Unknown]
  - Off label use [Unknown]
